FAERS Safety Report 22099131 (Version 2)
Quarter: 2023Q1

REPORT INFORMATION
  Report Type: Spontaneous
  Country: US (occurrence: US)
  Receive Date: 20230315
  Receipt Date: 20230327
  Transmission Date: 20230418
  Serious: No
  Sender: FDA-Public Use
  Company Number: US-Calliditas-2023CAL00244

PATIENT
  Age: 57 Year
  Sex: Male

DRUGS (2)
  1. TARPEYO [Suspect]
     Active Substance: BUDESONIDE
     Indication: IgA nephropathy
     Dosage: 4 MG (4 MG CAPSULES) ONCE DAILY
     Route: 048
     Dates: start: 20230228
  2. INSULIN NOS [Suspect]
     Active Substance: INSULIN NOS

REACTIONS (4)
  - Nausea [Not Recovered/Not Resolved]
  - Prescribed underdose [Unknown]
  - Vomiting [Unknown]
  - Upper respiratory tract infection [Not Recovered/Not Resolved]

NARRATIVE: CASE EVENT DATE: 20230301
